FAERS Safety Report 7273449-X (Version None)
Quarter: 2011Q1

REPORT INFORMATION
  Report Type: 
  Country: None (occurrence: None)
  Receive Date: 20110203
  Receipt Date: 20110131
  Transmission Date: 20110831
  Serious: Yes (Other)
  Sender: FDA-Public Use
  Company Number: US-PFIZER INC-2011022561

PATIENT
  Sex: Male
  Weight: 102.4 kg

DRUGS (13)
  1. RELPAX [Concomitant]
     Dosage: UNK
  2. FLEXERIL [Concomitant]
     Dosage: UNK
  3. LAMISIL [Concomitant]
     Indication: FUNGAL INFECTION
     Dosage: UNK
  4. OMEPRAZOLE [Concomitant]
     Dosage: UNK
  5. MONTELUKAST [Concomitant]
     Dosage: UNK
  6. VITAMIN B-12 [Concomitant]
     Indication: ASTHENIA
     Dosage: UNK
  7. LYRICA [Suspect]
     Indication: NEURALGIA
     Dosage: 25 MG, 2X/DAY
     Route: 048
     Dates: start: 20100901
  8. LYRICA [Suspect]
     Indication: HEADACHE
  9. NYSTATIN [Concomitant]
     Indication: FUNGAL INFECTION
     Dosage: UNK
  10. LYRICA [Suspect]
     Indication: INJURY
  11. LYRICA [Suspect]
     Indication: MIGRAINE
  12. DIFLUCAN [Concomitant]
     Dosage: UNK
  13. MOBIC [Concomitant]
     Indication: BONE DISORDER
     Dosage: UNK

REACTIONS (5)
  - HEAD DISCOMFORT [None]
  - SWELLING [None]
  - DRUG INEFFECTIVE [None]
  - SINUSITIS [None]
  - BLOOD CHOLESTEROL INCREASED [None]
